FAERS Safety Report 8918682 (Version 2)
Quarter: 2014Q2

REPORT INFORMATION
  Report Type: Spontaneous
  Country: US (occurrence: US)
  Receive Date: 20121120
  Receipt Date: 20140116
  Transmission Date: 20141212
  Serious: No
  Sender: FDA-Public Use
  Company Number: US-ASTRAZENECA-2012SE28667

PATIENT
  Age: 35 Year
  Sex: Male
  Weight: 124.7 kg

DRUGS (4)
  1. NEXIUM [Suspect]
     Indication: GASTROOESOPHAGEAL REFLUX DISEASE
     Route: 048
     Dates: start: 2008
  2. NEXIUM [Interacting]
     Indication: COLITIS
     Route: 048
     Dates: start: 2008
  3. RAPAFLO [Interacting]
     Indication: PROSTATE INFECTION
     Route: 048
  4. ASACOL HC [Concomitant]
     Indication: COLITIS

REACTIONS (7)
  - Drug interaction [Unknown]
  - Prostate infection [Unknown]
  - Gastric disorder [Unknown]
  - Gastric ulcer [Unknown]
  - Colitis [Unknown]
  - Off label use [Unknown]
  - Drug effect decreased [Unknown]
